FAERS Safety Report 6265471-7 (Version None)
Quarter: 2009Q3

REPORT INFORMATION
  Report Type: 
  Country: None (occurrence: None)
  Receive Date: 20090713
  Receipt Date: 20090629
  Transmission Date: 20100115
  Serious: Yes (Hospitalization)
  Sender: FDA-Public Use
  Company Number: GB-PFIZER INC-2009220019

PATIENT

DRUGS (1)
  1. LYRICA [Suspect]
     Dosage: UNK
     Dates: end: 20090501

REACTIONS (1)
  - PNEUMONIA [None]
